FAERS Safety Report 17860852 (Version 1)
Quarter: 2020Q2

REPORT INFORMATION
  Report Type: Report from Study
  Country: US (occurrence: US)
  Receive Date: 20200604
  Receipt Date: 20200604
  Transmission Date: 20200714
  Serious: Yes (Death, Other)
  Sender: FDA-Public Use
  Company Number: US-PFIZER INC-2020218295

PATIENT
  Age: 57 Year
  Sex: Female

DRUGS (1)
  1. IBRANCE [Suspect]
     Active Substance: PALBOCICLIB
     Indication: BREAST CANCER
     Dosage: 100 MG, CYCLIC (DAILY FOR 21 DAYS, THEN OFF FOR 7 DAYS)
     Route: 048

REACTIONS (2)
  - Death [Fatal]
  - Clostridium difficile infection [Unknown]

NARRATIVE: CASE EVENT DATE: 20200602
